FAERS Safety Report 13820765 (Version 1)
Quarter: 2017Q3

REPORT INFORMATION
  Report Type: Report from Study
  Country: US (occurrence: US)
  Receive Date: 20170801
  Receipt Date: 20170801
  Transmission Date: 20171127
  Serious: Yes (Other)
  Sender: FDA-Public Use
  Company Number: US-GILEAD-2017-0283857

PATIENT
  Age: 74 Year
  Sex: Male

DRUGS (5)
  1. ADEMPAS [Concomitant]
     Active Substance: RIOCIGUAT
  2. AMBRISENTAN [Suspect]
     Active Substance: AMBRISENTAN
     Indication: PRODUCT USED FOR UNKNOWN INDICATION
     Dosage: 10 MG, QD
     Route: 065
     Dates: start: 20140619
  3. UPTRAVI [Suspect]
     Active Substance: SELEXIPAG
     Indication: PRODUCT USED FOR UNKNOWN INDICATION
     Route: 065
  4. REMODULIN [Concomitant]
     Active Substance: TREPROSTINIL
     Dosage: 8 NG, UNK
     Route: 042
  5. REMODULIN [Concomitant]
     Active Substance: TREPROSTINIL
     Dosage: 12 NG, UNK
     Route: 042

REACTIONS (6)
  - Constipation [Not Recovered/Not Resolved]
  - Productive cough [Not Recovered/Not Resolved]
  - Terminal state [Unknown]
  - Lung disorder [Unknown]
  - Hypotension [Unknown]
  - Fatigue [Not Recovered/Not Resolved]
